FAERS Safety Report 13761772 (Version 2)
Quarter: 2019Q2

REPORT INFORMATION
  Report Type: Spontaneous
  Country: US (occurrence: US)
  Receive Date: 20170718
  Receipt Date: 20190514
  Transmission Date: 20190711
  Serious: Yes (Death, Other)
  Sender: FDA-Public Use
  Company Number: US-AUROBINDO-AUR-APL-2017-37250

PATIENT

DRUGS (2)
  1. DEXAMETHASONE. [Suspect]
     Active Substance: DEXAMETHASONE
     Indication: NEUROSARCOIDOSIS
     Dosage: 8 MILLIGRAM, PER DAY
     Route: 065
  2. INFLIXIMAB [Suspect]
     Active Substance: INFLIXIMAB
     Indication: NEUROSARCOIDOSIS
     Dosage: 5 MILLIGRAM/KILOGRAM, MONTHLY FOR 3 DOSES
     Route: 042

REACTIONS (6)
  - Arteritis [Fatal]
  - CSF protein increased [Fatal]
  - Respiratory failure [Fatal]
  - Aspergillus infection [Fatal]
  - Brain abscess [Fatal]
  - Cognitive disorder [Fatal]
